FAERS Safety Report 9683191 (Version 3)
Quarter: 2013Q4

REPORT INFORMATION
  Report Type: Spontaneous
  Country: JP (occurrence: JP)
  Receive Date: 20131112
  Receipt Date: 20131210
  Transmission Date: 20140711
  Serious: Yes (Hospitalization, Other)
  Sender: FDA-Public Use
  Company Number: JP-ELI_LILLY_AND_COMPANY-JP201309010086

PATIENT
  Age: 81 Year
  Sex: Male

DRUGS (9)
  1. CYMBALTA [Suspect]
     Indication: POST HERPETIC NEURALGIA
     Dosage: 20 MG, QD
     Route: 048
     Dates: start: 20130917
  2. DERMOSOL G [Concomitant]
     Dosage: UNK
     Route: 062
  3. GASMOTIN [Concomitant]
     Dosage: 15 MG, TID
     Route: 048
  4. SENNOSIDE                          /00571901/ [Concomitant]
     Dosage: 12 MG, QD
     Route: 048
  5. TRIAZOLAM [Concomitant]
     Dosage: 0.25 MG, QD
     Route: 048
  6. PARIET [Concomitant]
     Dosage: 10 MG, QD
     Route: 048
  7. FERROMIA                           /00023516/ [Concomitant]
     Dosage: 100 MG, BID
     Route: 048
  8. FUROSEMIDE [Concomitant]
     Dosage: 10 MG, QD
     Route: 048
  9. MUCOSTA [Concomitant]
     Dosage: 300 MG, TID
     Route: 048

REACTIONS (4)
  - Epilepsy [Recovered/Resolved]
  - Cerebral infarction [Unknown]
  - Grand mal convulsion [Recovered/Resolved]
  - Off label use [Recovered/Resolved]
